FAERS Safety Report 7396966-0 (Version None)
Quarter: 2011Q2

REPORT INFORMATION
  Report Type: 
  Country: None (occurrence: None)
  Receive Date: 20110406
  Receipt Date: 20101029
  Transmission Date: 20111010
  Serious: Yes (Other)
  Sender: FDA-Public Use
  Company Number: US-BAYER-201018633NA

PATIENT
  Sex: Female
  Weight: 77.098 kg

DRUGS (10)
  1. CEPHALEXIN [Concomitant]
  2. CLONAZEPAM [Concomitant]
  3. ZOLOFT [Concomitant]
  4. SERTRALINE HYDROCHLORIDE [Concomitant]
  5. CEFACLOR [Concomitant]
  6. ALEVE [Concomitant]
     Dosage: OCCASIONALLY
  7. YASMIN [Suspect]
     Indication: PRODUCT USED FOR UNKNOWN INDICATION
     Dosage: AS USED DOSE: UNK
     Route: 048
     Dates: start: 20080401
  8. YAZ [Suspect]
     Indication: MENSTRUATION IRREGULAR
     Dosage: UNK
     Dates: start: 20080401, end: 20090801
  9. KEFLEX [Concomitant]
     Indication: PHARYNGITIS STREPTOCOCCAL
     Dosage: UNK
     Dates: start: 20091101
  10. VICODIN [Concomitant]

REACTIONS (3)
  - CHOLELITHIASIS [None]
  - CHOLECYSTITIS CHRONIC [None]
  - PANCREATITIS [None]
